FAERS Safety Report 4921277-X (Version None)
Quarter: 2006Q1

REPORT INFORMATION
  Report Type: 
  Country: None (occurrence: None)
  Receive Date: 20060224
  Receipt Date: 20051128
  Transmission Date: 20060701
  Serious: Yes (Other)
  Sender: FDA-Public Use
  Company Number: PHFR2005IE03897

PATIENT
  Age: 45 Year
  Sex: Female

DRUGS (5)
  1. CLOZARIL [Suspect]
     Indication: SCHIZOPHRENIA
     Dosage: 150 MG/DAY
     Route: 048
     Dates: start: 20030815
  2. XANOR [Concomitant]
     Indication: ANXIETY
     Dosage: 0.25 MG, TID
     Route: 048
  3. KEMADRIN [Concomitant]
     Indication: EXTRAPYRAMIDAL DISORDER
     Dosage: 2.5 MG, TID
     Route: 048
  4. SURMONTIL /UNK/ [Concomitant]
     Indication: SCHIZOPHRENIA
     Dosage: 25 MG NOCTE
  5. FLUANXOL [Concomitant]
     Indication: SCHIZOPHRENIA
     Dosage: 1 MG MANE

REACTIONS (1)
  - ELECTROCARDIOGRAM QT CORRECTED INTERVAL PROLONGED [None]
